FAERS Safety Report 10657928 (Version 2)
Quarter: 2015Q2

REPORT INFORMATION
  Report Type: Spontaneous
  Country: US (occurrence: US)
  Receive Date: 20141217
  Receipt Date: 20150611
  Transmission Date: 20150821
  Serious: Yes (Death)
  Sender: FDA-Public Use
  Company Number: US-BAUSCH-BL-2014-005108

PATIENT
  Age: 70 Year
  Sex: Female

DRUGS (2)
  1. XENAZINE [Suspect]
     Active Substance: TETRABENAZINE
     Indication: DYSKINESIA
     Route: 048
     Dates: start: 20130725
  2. XENAZINE [Suspect]
     Active Substance: TETRABENAZINE
     Indication: TARDIVE DYSKINESIA
     Route: 048
     Dates: start: 201307

REACTIONS (4)
  - Death [Fatal]
  - Off label use [Not Recovered/Not Resolved]
  - Blister [Unknown]
  - Tic [Unknown]

NARRATIVE: CASE EVENT DATE: 20130725
